FAERS Safety Report 16209369 (Version 2)
Quarter: 2019Q2

REPORT INFORMATION
  Report Type: Spontaneous
  Country: AT (occurrence: AT)
  Receive Date: 20190417
  Receipt Date: 20190422
  Transmission Date: 20190711
  Serious: Yes (Hospitalization)
  Sender: FDA-Public Use
  Company Number: AT-B.I. PHARMACEUTICALS,INC./RIDGEFIELD-2019-BI-017056

PATIENT
  Age: 73 Year
  Sex: Female

DRUGS (1)
  1. PRADAXA [Suspect]
     Active Substance: DABIGATRAN ETEXILATE MESYLATE
     Indication: ATRIAL FIBRILLATION
     Route: 048

REACTIONS (6)
  - Hypothalamo-pituitary disorder [Unknown]
  - Ischaemic stroke [Unknown]
  - Facial paralysis [Unknown]
  - Neurologic neglect syndrome [Unknown]
  - Hemiparesis [Unknown]
  - Dysarthria [Unknown]
